FAERS Safety Report 24618791 (Version 1)
Quarter: 2024Q4

REPORT INFORMATION
  Report Type: Spontaneous
  Country: US (occurrence: US)
  Receive Date: 20241114
  Receipt Date: 20241114
  Transmission Date: 20250115
  Serious: No
  Sender: GLAXOSMITHKLINE
  Company Number: US-GSKCCFUS-Case-02144109_AE-118268

PATIENT
  Age: 83 Year
  Sex: Male

DRUGS (1)
  1. VENTOLIN [Suspect]
     Active Substance: ALBUTEROL SULFATE
     Indication: Product used for unknown indication
     Dosage: UNK UNK, QID
     Dates: start: 20241102

REACTIONS (11)
  - Dizziness [Recovered/Resolved]
  - Migraine [Recovered/Resolved]
  - Photopsia [Recovered/Resolved]
  - Visual impairment [Unknown]
  - Feeling drunk [Unknown]
  - Vertigo [Unknown]
  - Nausea [Not Recovered/Not Resolved]
  - Dysstasia [Unknown]
  - Feeling abnormal [Unknown]
  - Abdominal discomfort [Not Recovered/Not Resolved]
  - Drug ineffective [Unknown]

NARRATIVE: CASE EVENT DATE: 20241101
